FAERS Safety Report 8264113-9 (Version None)
Quarter: 2012Q2

REPORT INFORMATION
  Report Type: 
  Country: None (occurrence: None)
  Receive Date: 20120406
  Receipt Date: 20120330
  Transmission Date: 20120825
  Serious: No
  Sender: FDA-Public Use
  Company Number: US-BIOGENIDEC-2012BI011382

PATIENT
  Age: 53 Year
  Sex: Female

DRUGS (1)
  1. TYSABRI [Suspect]
     Indication: MULTIPLE SCLEROSIS
     Route: 042
     Dates: start: 20120210

REACTIONS (6)
  - MIGRAINE [None]
  - FUNGAL INFECTION [None]
  - VISUAL IMPAIRMENT [None]
  - NASOPHARYNGITIS [None]
  - MEMORY IMPAIRMENT [None]
  - SINUSITIS [None]
